FAERS Safety Report 5429746-3 (Version None)
Quarter: 2007Q3

REPORT INFORMATION
  Report Type: 
  Country: None (occurrence: None)
  Receive Date: 20070829
  Receipt Date: 20070820
  Transmission Date: 20080115
  Serious: Yes (Hospitalization)
  Sender: FDA-Public Use
  Company Number: US-AMGEN-STX237549

PATIENT
  Sex: Female

DRUGS (5)
  1. ENBREL [Suspect]
     Indication: RHEUMATOID ARTHRITIS
     Route: 058
     Dates: start: 20001221
  2. TYLENOL (CAPLET) [Concomitant]
  3. DARVOCET [Concomitant]
  4. PREVACID [Concomitant]
  5. ZOLOFT [Concomitant]

REACTIONS (3)
  - GASTRIC HAEMORRHAGE [None]
  - GASTRIC ULCER [None]
  - RHEUMATOID ARTHRITIS [None]
